FAERS Safety Report 6138072-9 (Version None)
Quarter: 2009Q1

REPORT INFORMATION
  Report Type: 
  Country: None (occurrence: None)
  Receive Date: 20090331
  Receipt Date: 20090323
  Transmission Date: 20090719
  Serious: Yes (Hospitalization)
  Sender: FDA-Public Use
  Company Number: US-ALLERGAN-0809410US

PATIENT
  Sex: Female

DRUGS (12)
  1. BOTOX [Suspect]
     Indication: MIGRAINE
     Dosage: 300 UNITS, SINGLE
     Route: 030
     Dates: start: 20080514, end: 20080514
  2. SYNTHROID [Concomitant]
  3. NORVASC [Concomitant]
  4. RYTHMOL [Concomitant]
  5. MICARDIS [Concomitant]
  6. MEMESTINE [Concomitant]
  7. AMBIEN [Concomitant]
  8. LIPITOR [Concomitant]
     Dosage: 10 MG, UNK
  9. BONIVA [Concomitant]
  10. CLONIDINE [Concomitant]
     Dosage: 0.1 MG, UNK
  11. VERAPAMIL [Concomitant]
     Dosage: 300 MG, UNK
  12. NORTRIPTYLINE HCL [Concomitant]
     Dosage: 25 MG, UNK

REACTIONS (5)
  - ASTHENIA [None]
  - DYSPHAGIA [None]
  - DYSPNOEA [None]
  - FATIGUE [None]
  - RESPIRATORY DISTRESS [None]
